FAERS Safety Report 5834958-0 (Version None)
Quarter: 2008Q3

REPORT INFORMATION
  Report Type: 
  Country: None (occurrence: None)
  Receive Date: 20080806
  Receipt Date: 20080730
  Transmission Date: 20090109
  Serious: Yes (Life-Threatening)
  Sender: FDA-Public Use
  Company Number: BR-JNJFOC-20080800363

PATIENT

DRUGS (1)
  1. HALDOL [Suspect]
     Indication: DRUG USE FOR UNKNOWN INDICATION

REACTIONS (1)
  - GENERAL PHYSICAL CONDITION ABNORMAL [None]
